FAERS Safety Report 4586825-0 (Version None)
Quarter: 2005Q1

REPORT INFORMATION
  Report Type: 
  Country: None (occurrence: None)
  Receive Date: 20050217
  Receipt Date: 20050217
  Transmission Date: 20050727
  Serious: Yes (Life-Threatening, Hospitalization)
  Sender: FDA-Public Use
  Company Number: None

PATIENT
  Sex: Female

DRUGS (3)
  1. CETACAINE SPRAY    CETYLITE INDUSTRIES [Suspect]
     Indication: GASTROINTESTINAL TUBE INSERTION
     Dosage: TOPICAL
     Route: 061
     Dates: start: 20050213, end: 20050213
  2. FENTANYL [Concomitant]
  3. VERSED [Concomitant]

REACTIONS (6)
  - AGITATION [None]
  - BRONCHOSPASM [None]
  - OXYGEN SATURATION DECREASED [None]
  - RESTLESSNESS [None]
  - TACHYPNOEA [None]
  - WHEEZING [None]
